FAERS Safety Report 9681300 (Version 1)
Quarter: 2013Q4

REPORT INFORMATION
  Report Type: Spontaneous
  Country: IT (occurrence: IT)
  Receive Date: 20131111
  Receipt Date: 20131111
  Transmission Date: 20140711
  Serious: Yes (Hospitalization)
  Sender: FDA-Public Use
  Company Number: IT-TEVA-442389ISR

PATIENT
  Age: 76 Year
  Sex: Female

DRUGS (7)
  1. FLECAINIDE TEVA 100MG [Suspect]
     Indication: ATRIAL FIBRILLATION
     Dosage: 150 MILLIGRAM DAILY;
     Route: 048
  2. AMARYL 2MG [Suspect]
     Indication: TYPE 2 DIABETES MELLITUS
     Dosage: 2 MILLIGRAM DAILY;
     Route: 048
  3. BLOPRESID 32MG/25MG [Concomitant]
     Indication: HYPERTENSION
     Dosage: 1 DOSAGE FORMS DAILY;
     Route: 048
  4. CARDURA 4MG [Concomitant]
     Indication: HYPERTENSION
     Dosage: 4 MILLIGRAM DAILY; MODIFIED RELEASE TABLET
     Route: 048
  5. LANSOX 15MG [Concomitant]
     Indication: PROPHYLAXIS AGAINST GASTROINTESTINAL ULCER
     Dosage: 1 DOSAGE FORMS DAILY; ORODISPERSIBLE TABLET
     Route: 048
  6. COUMADIN [Concomitant]
     Indication: ATRIAL FIBRILLATION
     Route: 048
  7. FUROSEMIDE MYLAN GENERICS 25MG [Concomitant]
     Indication: CARDIAC FAILURE
     Dosage: 1 DOSAGE FORMS DAILY;
     Route: 048

REACTIONS (3)
  - Bradycardia [Recovered/Resolved]
  - Hypotension [Recovered/Resolved]
  - Hypoglycaemia [Recovered/Resolved]
